FAERS Safety Report 18724003 (Version 1)
Quarter: 2021Q1

REPORT INFORMATION
  Report Type: Spontaneous
  Country: US (occurrence: US)
  Receive Date: 20210111
  Receipt Date: 20210111
  Transmission Date: 20210419
  Serious: Yes (Other)
  Sender: FDA-Public Use
  Company Number: US-AXELLIA-003638

PATIENT
  Age: 60 Year
  Sex: Female

DRUGS (1)
  1. VANCOMYCIN [Suspect]
     Active Substance: VANCOMYCIN
     Indication: PRODUCT USED FOR UNKNOWN INDICATION
     Route: 042

REACTIONS (6)
  - Kidney fibrosis [Unknown]
  - Renal tubular necrosis [Unknown]
  - Renal arteriosclerosis [Unknown]
  - Acute kidney injury [Unknown]
  - Drug level increased [Unknown]
  - Renal tubular atrophy [Unknown]
